FAERS Safety Report 9974197 (Version 2)
Quarter: 2014Q2

REPORT INFORMATION
  Report Type: Spontaneous
  Country: JP (occurrence: JP)
  Receive Date: 20140306
  Receipt Date: 20140423
  Transmission Date: 20141212
  Serious: Yes (Other)
  Sender: FDA-Public Use
  Company Number: JP-GLAXOSMITHKLINE-B0974167A

PATIENT
  Age: 58 Year
  Sex: Male

DRUGS (1)
  1. RELVAR ELLIPTA [Suspect]
     Indication: ASTHMA
     Dosage: 200MCG PER DAY
     Route: 055
     Dates: start: 201312

REACTIONS (2)
  - Oesophageal candidiasis [Recovered/Resolved]
  - Dysphonia [Recovered/Resolved]
